FAERS Safety Report 14688684 (Version 1)
Quarter: 2018Q1

REPORT INFORMATION
  Report Type: Spontaneous
  Country: IT (occurrence: IT)
  Receive Date: 20180328
  Receipt Date: 20180328
  Transmission Date: 20180509
  Serious: Yes (Death, Other)
  Sender: FDA-Public Use
  Company Number: IT-CELGENEUS-ITA-20180306363

PATIENT
  Age: 67 Year
  Sex: Female

DRUGS (2)
  1. DELTACORTENE [Suspect]
     Active Substance: PREDNISONE
     Indication: PLASMA CELL MYELOMA
     Route: 048
     Dates: start: 20170922, end: 20171013
  2. POMALIDOMIDE [Suspect]
     Active Substance: POMALIDOMIDE
     Indication: PLASMA CELL MYELOMA
     Route: 048
     Dates: start: 20170922, end: 20171012

REACTIONS (2)
  - Plasma cell myeloma [Fatal]
  - Neutropenia [Unknown]

NARRATIVE: CASE EVENT DATE: 20171009
